FAERS Safety Report 6070664-8 (Version None)
Quarter: 2009Q1

REPORT INFORMATION
  Report Type: 
  Country: None (occurrence: None)
  Receive Date: 20090209
  Receipt Date: 20090202
  Transmission Date: 20090719
  Serious: Yes (Other)
  Sender: FDA-Public Use
  Company Number: US-JNJFOC-20090201002

PATIENT
  Sex: Female
  Weight: 48.54 kg

DRUGS (5)
  1. FENTANYL TRANSDERMAL SYSTEM [Suspect]
     Route: 062
  2. FENTANYL TRANSDERMAL SYSTEM [Suspect]
     Route: 062
  3. FENTANYL TRANSDERMAL SYSTEM [Suspect]
     Indication: BACK PAIN
     Route: 062
  4. PLAVIX [Concomitant]
     Indication: CEREBROVASCULAR ACCIDENT
     Route: 048
  5. UNSPECIFIED MEDICATION [Concomitant]
     Indication: BLOOD PRESSURE
     Route: 048

REACTIONS (13)
  - ABNORMAL SENSATION IN EYE [None]
  - BLINDNESS [None]
  - EAR PAIN [None]
  - EYE PAIN [None]
  - EYE SWELLING [None]
  - FACIAL PAIN [None]
  - INCORRECT DRUG ADMINISTRATION DURATION [None]
  - INTRAOCULAR PRESSURE INCREASED [None]
  - MIGRAINE [None]
  - PAIN IN JAW [None]
  - SWELLING FACE [None]
  - TOOTHACHE [None]
  - VISUAL IMPAIRMENT [None]
